FAERS Safety Report 7562436-X (Version None)
Quarter: 2011Q2

REPORT INFORMATION
  Report Type: 
  Country: None (occurrence: None)
  Receive Date: 20110622
  Receipt Date: 20110614
  Transmission Date: 20111010
  Serious: Yes (Hospitalization, Other)
  Sender: FDA-Public Use
  Company Number: JP-ASTELLAS-2011JP002621

PATIENT
  Sex: Male
  Weight: 63.8 kg

DRUGS (21)
  1. TACROLIMUS [Suspect]
     Dosage: 12 MG, UID/QD
     Route: 048
  2. PROGRAF [Suspect]
     Dosage: 3.8 MG, UNKNOWN/D
     Route: 042
     Dates: start: 20100915, end: 20100915
  3. METHYLPREDNISOLONE [Concomitant]
     Dosage: 625 MG, UNKNOWN/D
     Route: 042
     Dates: start: 20100914, end: 20100914
  4. PREDNISOLONE [Concomitant]
     Dosage: 5 MG, UNKNOWN/D
     Route: 048
     Dates: start: 20100101, end: 20110101
  5. PROGRAF [Suspect]
     Indication: PROPHYLAXIS AGAINST TRANSPLANT REJECTION
     Dosage: 2.4 MG, UNKNOWN/D
     Route: 042
     Dates: start: 20100916, end: 20100916
  6. PROGRAF [Suspect]
     Dosage: 2.0 MG, UNKNOWN/D
     Route: 042
     Dates: start: 20100917, end: 20100919
  7. ZANTAC [Concomitant]
     Dosage: 12.5 MG, BID
     Route: 048
     Dates: start: 20100917
  8. TACROLIMUS [Suspect]
     Dosage: 18 MG, UID/QD
     Route: 048
     Dates: start: 20100927
  9. METHYLPREDNISOLONE [Concomitant]
     Dosage: 125 MG, UNKNOWN/D
     Route: 042
     Dates: start: 20100916, end: 20100916
  10. PREDNISOLONE [Concomitant]
     Dosage: 40 MG, UNKNOWN/D
     Route: 048
     Dates: start: 20100920, end: 20100924
  11. PREDNISOLONE [Concomitant]
     Dosage: 10 MG, UNKNOWN/D
     Route: 048
     Dates: start: 20100101, end: 20100101
  12. SULFAMETHOXAZOLE [Concomitant]
     Dosage: 1 DF, UID/QD
     Route: 048
     Dates: start: 20100918
  13. TACROLIMUS [Suspect]
     Indication: PROPHYLAXIS AGAINST TRANSPLANT REJECTION
     Dosage: 12 MG, UID/QD
     Route: 048
     Dates: start: 20100911, end: 20100913
  14. MYCOPHENOLATE MEFETIL [Concomitant]
     Dosage: 1000 MG, UNKNOWN/D
     Route: 048
     Dates: start: 20100912
  15. BASILIXIMAB [Concomitant]
     Dosage: 20 MG, UNKNOWN/D
     Route: 042
     Dates: start: 20100918, end: 20100918
  16. PROGRAF [Suspect]
     Dosage: 0.8 MG, UNKNOWN/D
     Route: 042
     Dates: start: 20100920
  17. METHYLPREDNISOLONE [Concomitant]
     Dosage: 250 MG, UNKNOWN/D
     Route: 042
     Dates: start: 20100915, end: 20100915
  18. PREDNISOLONE [Concomitant]
     Dosage: 50 MG, UNKNOWN/D
     Route: 048
     Dates: start: 20100917, end: 20100919
  19. BASILIXIMAB [Concomitant]
     Dosage: 20 MG, UNKNOWN/D
     Route: 042
     Dates: start: 20100914, end: 20100914
  20. PREDNISOLONE [Concomitant]
     Dosage: 30 MG, UNKNOWN/D
     Route: 048
     Dates: start: 20100925, end: 20100101
  21. TACROLIMUS [Suspect]
     Dosage: 20 MG, UID/QD
     Route: 048
     Dates: start: 20100920, end: 20100926

REACTIONS (3)
  - URINARY ANASTOMOTIC LEAK [None]
  - RESTLESSNESS [None]
  - URINARY RETENTION [None]
